FAERS Safety Report 10086729 (Version 5)
Quarter: 2015Q2

REPORT INFORMATION
  Report Type: Report from Study
  Country: TH (occurrence: TH)
  Receive Date: 20140418
  Receipt Date: 20150413
  Transmission Date: 20150821
  Serious: Yes (Death, Life-Threatening)
  Sender: FDA-Public Use
  Company Number: TH-BRISTOL-MYERS SQUIBB COMPANY-20465373

PATIENT
  Age: 67 Year
  Sex: Male

DRUGS (8)
  1. PLACEBO [Suspect]
     Active Substance: UNSPECIFIED INGREDIENT
     Indication: NON-SMALL CELL LUNG CANCER
     Dosage: 559 MG, UNK
     Route: 042
     Dates: start: 20131009, end: 20131213
  2. BLINDED PACLITAXEL [Suspect]
     Active Substance: PACLITAXEL
     Indication: NON-SMALL CELL LUNG CANCER
     Dosage: 280 MG, UNK
     Route: 042
     Dates: start: 20130829, end: 20131213
  3. BLINDED IPILIMUMAB [Suspect]
     Active Substance: IPILIMUMAB
     Indication: NON-SMALL CELL LUNG CANCER
     Dosage: 559 MG, UNK
     Route: 042
     Dates: start: 20131009, end: 20131213
  4. BLINDED IPILIMUMAB [Suspect]
     Active Substance: IPILIMUMAB
     Indication: NON-SMALL CELL LUNG CANCER
     Dosage: 575 MG, UNK
     Route: 042
     Dates: start: 20130829, end: 20131213
  5. PLACEBO [Suspect]
     Active Substance: UNSPECIFIED INGREDIENT
     Indication: NON-SMALL CELL LUNG CANCER
     Dosage: 280 MG, UNK
     Route: 042
     Dates: start: 20130829, end: 20131213
  6. BLINDED CARBOPLATIN [Suspect]
     Active Substance: CARBOPLATIN
     Indication: NON-SMALL CELL LUNG CANCER
     Dosage: 575 MG, UNK
     Route: 042
     Dates: start: 20130829, end: 20131213
  7. PLACEBO [Suspect]
     Active Substance: UNSPECIFIED INGREDIENT
     Indication: NON-SMALL CELL LUNG CANCER
     Dosage: 575 MG, UNK
     Route: 042
     Dates: start: 20130829, end: 20131213
  8. BLINDED IPILIMUMAB [Suspect]
     Active Substance: IPILIMUMAB
     Indication: NON-SMALL CELL LUNG CANCER
     Dosage: 280 MG, UNK
     Route: 042
     Dates: start: 20130829, end: 20131213

REACTIONS (2)
  - Tuberculosis [Fatal]
  - Blood creatinine increased [Not Recovered/Not Resolved]

NARRATIVE: CASE EVENT DATE: 20140212
